FAERS Safety Report 17356928 (Version 1)
Quarter: 2020Q1

REPORT INFORMATION
  Report Type: Spontaneous
  Country: US (occurrence: US)
  Receive Date: 20200131
  Receipt Date: 20200131
  Transmission Date: 20200409
  Serious: No
  Sender: FDA-Public Use
  Company Number: US-FLEXION THERAPEUTICS, INC.-2019FLS000165

PATIENT
  Age: 41 Year
  Sex: Male

DRUGS (2)
  1. ZILRETTA [Suspect]
     Active Substance: TRIAMCINOLONE ACETONIDE
     Indication: JOINT SWELLING
     Route: 014
     Dates: start: 201906, end: 201906
  2. ZILRETTA [Suspect]
     Active Substance: TRIAMCINOLONE ACETONIDE
     Route: 014
     Dates: start: 201908, end: 201908

REACTIONS (2)
  - Joint swelling [Unknown]
  - Synovial fluid crystal present [Unknown]

NARRATIVE: CASE EVENT DATE: 201908
